FAERS Safety Report 11272563 (Version 1)
Quarter: 2015Q3

REPORT INFORMATION
  Report Type: Spontaneous
  Country: US (occurrence: None)
  Receive Date: 20150714
  Receipt Date: 20150714
  Transmission Date: 20151125
  Serious: Yes (Other)
  Sender: FDA-Public Use
  Company Number: None

PATIENT
  Age: 42 Year
  Sex: Female
  Weight: 116.12 kg

DRUGS (19)
  1. VENLAFAXINE 75MG [Suspect]
     Active Substance: VENLAFAXINE HYDROCHLORIDE
     Indication: BIPOLAR DISORDER
     Dosage: VEN LA FAXINE 75 MG ER CAPAP 1 CAPSULE ONCE A DAY ORALLY ?COMPANY: GREENSTONE OR TORRENT?NDC# 6050537780?STARTED -9-8-14 TO PRESENT
     Route: 048
     Dates: start: 20140908
  2. CLONAZEPAM 0.5MG [Suspect]
     Active Substance: CLONAZEPAM
     Dosage: 1 TABLET ORALLY ?TWICE ADAY?STARTED 9-8-14 TO PRESENT
     Route: 048
     Dates: start: 20140908
  3. B-12 VITAMIN [Concomitant]
  4. PEPCID [Concomitant]
     Active Substance: FAMOTIDINE
  5. CALCIUM CARBONATE. [Concomitant]
     Active Substance: CALCIUM CARBONATE
  6. MUPIRCIN [Concomitant]
  7. MAGNESIUM HYDROXIDE. [Concomitant]
     Active Substance: MAGNESIUM HYDROXIDE
  8. GABAPENTIN. [Concomitant]
     Active Substance: GABAPENTIN
  9. MINOCYCLINE [Concomitant]
     Active Substance: MINOCYCLINE\MINOCYCLINE HYDROCHLORIDE
  10. PROCTOSOL HC [Concomitant]
  11. VENLAFAXINE 75MG [Suspect]
     Active Substance: VENLAFAXINE HYDROCHLORIDE
     Indication: DEPRESSION
     Dosage: VEN LA FAXINE 75 MG ER CAPAP 1 CAPSULE ONCE A DAY ORALLY ?COMPANY: GREENSTONE OR TORRENT?NDC# 6050537780?STARTED -9-8-14 TO PRESENT
     Route: 048
     Dates: start: 20140908
  12. ASPIRIN. [Concomitant]
     Active Substance: ASPIRIN
  13. LORDATINE [Concomitant]
  14. NYSTOP [Concomitant]
     Active Substance: NYSTATIN
  15. ALEVE [Concomitant]
     Active Substance: NAPROXEN SODIUM
  16. LORAZEPAM. [Concomitant]
     Active Substance: LORAZEPAM
  17. TRIAMCINOLON [Concomitant]
  18. VENLAFAXINE 75MG [Suspect]
     Active Substance: VENLAFAXINE HYDROCHLORIDE
     Indication: ANXIETY DISORDER
     Dosage: VEN LA FAXINE 75 MG ER CAPAP 1 CAPSULE ONCE A DAY ORALLY ?COMPANY: GREENSTONE OR TORRENT?NDC# 6050537780?STARTED -9-8-14 TO PRESENT
     Route: 048
     Dates: start: 20140908
  19. KETOCONAZOLE SHAMPOO [Concomitant]

REACTIONS (25)
  - Rash [None]
  - Hypersomnia [None]
  - Pain [None]
  - Fall [None]
  - Dyspareunia [None]
  - Hearing impaired [None]
  - Tinnitus [None]
  - Haemorrhage [None]
  - Condition aggravated [None]
  - Abnormal behaviour [None]
  - Skin ulcer [None]
  - Somnolence [None]
  - Photophobia [None]
  - Pyrexia [None]
  - Coordination abnormal [None]
  - Thinking abnormal [None]
  - Burning sensation [None]
  - Hyperhidrosis [None]
  - Vision blurred [None]
  - Pruritus generalised [None]
  - Haematochezia [None]
  - Feeling hot [None]
  - Temperature intolerance [None]
  - Paraesthesia [None]
  - Middle insomnia [None]

NARRATIVE: CASE EVENT DATE: 20141014
